FAERS Safety Report 4821563-8 (Version None)
Quarter: 2005Q4

REPORT INFORMATION
  Report Type: 
  Country: None (occurrence: None)
  Receive Date: 20051107
  Receipt Date: 20051027
  Transmission Date: 20060501
  Serious: Yes (Other)
  Sender: FDA-Public Use
  Company Number: PHEH2005US11988

PATIENT
  Age: 66 Year
  Sex: Female

DRUGS (1)
  1. ZOMETA [Suspect]
     Dosage: 4 MG EVERY 4 WEEKS
     Dates: start: 20030101, end: 20050601

REACTIONS (2)
  - OSTEONECROSIS [None]
  - PAIN IN JAW [None]
